FAERS Safety Report 13690970 (Version 1)
Quarter: 2017Q2

REPORT INFORMATION
  Report Type: Report from Study
  Country: GB (occurrence: GB)
  Receive Date: 20170626
  Receipt Date: 20170626
  Transmission Date: 20170830
  Serious: Yes (Other)
  Sender: FDA-Public Use
  Company Number: GB-ALLERGAN-1726600US

PATIENT
  Age: 48 Year
  Sex: Male
  Weight: 140 kg

DRUGS (2)
  1. CEFTAZIDIME;AVIBACTAM UNK [Suspect]
     Active Substance: AVIBACTAM SODIUM\CEFTAZIDIME
     Indication: PNEUMONIA
     Dosage: 2.5 TDS
     Route: 042
     Dates: start: 20161010, end: 20161015
  2. CEFTAZIDIME;AVIBACTAM UNK [Suspect]
     Active Substance: AVIBACTAM SODIUM\CEFTAZIDIME
     Indication: PNEUMONIA ASPIRATION
     Dosage: 2,5 TDS
     Route: 042
     Dates: start: 20160903, end: 20160913

REACTIONS (1)
  - Pathogen resistance [Unknown]

NARRATIVE: CASE EVENT DATE: 20161010
